FAERS Safety Report 9969901 (Version 1)
Quarter: 2014Q1

REPORT INFORMATION
  Report Type: Spontaneous
  Country: US (occurrence: None)
  Receive Date: 20140131
  Receipt Date: 20140131
  Transmission Date: 20141002
  Serious: Yes (Hospitalization)
  Sender: FDA-Public Use
  Company Number: 093239

PATIENT
  Age: 23 Year
  Sex: Female
  Weight: 89.8 kg

DRUGS (6)
  1. KEPPRA [Suspect]
     Indication: EPILEPSY
     Dates: start: 20130202, end: 20130218
  2. RAD001 [Suspect]
     Indication: TUBEROUS SCLEROSIS
     Dosage: ()  THERAPY DATES (12NOV2009 UNTO CONTINUING)
  3. METHYLPHENIDATE [Concomitant]
  4. CYMBALTA [Concomitant]
  5. FELBAMATE [Concomitant]
  6. MELATONIN [Concomitant]

REACTIONS (2)
  - Psychotic disorder [None]
  - Hallucination [None]
